FAERS Safety Report 25804174 (Version 1)
Quarter: 2025Q3

REPORT INFORMATION
  Report Type: Spontaneous
  Country: US (occurrence: None)
  Receive Date: 20250915
  Receipt Date: 20250915
  Transmission Date: 20251020
  Serious: Yes (Life-Threatening, Disabling, Other)
  Sender: FDA-CTU
  Company Number: None

PATIENT
  Age: 69 Year
  Sex: Male
  Weight: 100.35 kg

DRUGS (10)
  1. SEROQUEL [Suspect]
     Active Substance: QUETIAPINE FUMARATE
     Indication: Sleep disorder
     Dosage: FREQUENCY : AT BEDTIME;?
     Route: 048
     Dates: start: 20150322, end: 20230603
  2. LEVOTHYROXINE [Concomitant]
     Active Substance: LEVOTHYROXINE
  3. TAMSULOSIN [Concomitant]
     Active Substance: TAMSULOSIN
  4. furoemide [Concomitant]
  5. METFORMIN [Concomitant]
     Active Substance: METFORMIN HYDROCHLORIDE
  6. cloistered [Concomitant]
  7. RANOLAZINE [Concomitant]
     Active Substance: RANOLAZINE
  8. FINASTERIDE [Concomitant]
     Active Substance: FINASTERIDE
  9. AMLODIPINE BESYLATE [Concomitant]
     Active Substance: AMLODIPINE BESYLATE
  10. ASPIRIN [Concomitant]
     Active Substance: ASPIRIN

REACTIONS (12)
  - Dizziness [None]
  - Dizziness [None]
  - Confusional state [None]
  - Muscular weakness [None]
  - Anaemia [None]
  - Impaired reasoning [None]
  - Mental impairment [None]
  - Gait disturbance [None]
  - Orthostatic hypotension [None]
  - Impaired quality of life [None]
  - Amnesia [None]
  - Deep vein thrombosis [None]

NARRATIVE: CASE EVENT DATE: 20150322
